FAERS Safety Report 7064385-2 (Version None)
Quarter: 2010Q4

REPORT INFORMATION
  Report Type: 
  Country: None (occurrence: None)
  Receive Date: 20101022
  Receipt Date: 20101022
  Transmission Date: 20110411
  Serious: Yes (Other)
  Sender: FDA-Public Use
  Company Number: None

PATIENT
  Age: 12 Year
  Sex: Female
  Weight: 40 kg

DRUGS (2)
  1. TOPIRAMATE [Suspect]
     Dosage: 25 MG AT HS
     Dates: start: 20100513, end: 20101012
  2. IMITREX [Concomitant]

REACTIONS (1)
  - DIZZINESS [None]
